FAERS Safety Report 6461893-X (Version None)
Quarter: 2009Q4

REPORT INFORMATION
  Report Type: 
  Country: None (occurrence: None)
  Receive Date: 20091130
  Receipt Date: 20091123
  Transmission Date: 20100525
  Serious: Yes (Disabling)
  Sender: FDA-Public Use
  Company Number: PHHY2009IT51475

PATIENT
  Sex: Female

DRUGS (4)
  1. ZOMETA [Suspect]
     Indication: METASTASES TO BONE
     Dosage: 4 MG CYCLIC
     Route: 042
     Dates: start: 20021101, end: 20040401
  2. XELODA [Concomitant]
  3. AROMASIN [Concomitant]
  4. CAELYX [Concomitant]

REACTIONS (1)
  - OSTEONECROSIS [None]
